FAERS Safety Report 24215586 (Version 2)
Quarter: 2024Q3

REPORT INFORMATION
  Report Type: Report from Study
  Country: US (occurrence: US)
  Receive Date: 20240816
  Receipt Date: 20240910
  Transmission Date: 20241017
  Serious: No
  Sender: ACADIA PHARMACEUTICALS
  Company Number: US-ACADIA PHARMACEUTICALS INC.-ACA-2024-TRF-003982

PATIENT
  Age: 7 Year
  Sex: Female

DRUGS (11)
  1. DAYBUE [Suspect]
     Active Substance: TROFINETIDE
     Indication: Rett syndrome
     Dosage: 30 MILLILITER, BID
     Dates: start: 20230526
  2. CLONIDINE [Concomitant]
     Active Substance: CLONIDINE
  3. MONTELUKAST [Concomitant]
     Active Substance: MONTELUKAST SODIUM
  4. CETIRIZINE [Concomitant]
     Active Substance: CETIRIZINE HYDROCHLORIDE
  5. LAMOTRIGINE [Concomitant]
     Active Substance: LAMOTRIGINE
  6. CANNABIDIOL [Concomitant]
     Active Substance: CANNABIDIOL
  7. FAMOTIDINE [Concomitant]
     Active Substance: FAMOTIDINE
  8. TOPIRAMATE [Concomitant]
     Active Substance: TOPIRAMATE
  9. PHENYTOIN [Concomitant]
     Active Substance: PHENYTOIN
  10. PULMICORT TURBUHALER [Concomitant]
     Active Substance: BUDESONIDE
  11. ALBUTEROL [Concomitant]
     Active Substance: ALBUTEROL

REACTIONS (4)
  - Blood calcium decreased [Recovered/Resolved]
  - Vitamin D decreased [Recovered/Resolved]
  - Humerus fracture [Recovered/Resolved]
  - Gastrointestinal disorder [Not Recovered/Not Resolved]

NARRATIVE: CASE EVENT DATE: 20240623
